FAERS Safety Report 13192126 (Version 6)
Quarter: 2018Q2

REPORT INFORMATION
  Report Type: Report from Study
  Country: DE (occurrence: DE)
  Receive Date: 20170207
  Receipt Date: 20180423
  Transmission Date: 20180711
  Serious: Yes (Hospitalization, Other)
  Sender: FDA-Public Use
  Company Number: DE-ROCHE-1685942

PATIENT
  Age: 63 Year
  Sex: Male

DRUGS (24)
  1. ROACTEMRA [Suspect]
     Active Substance: TOCILIZUMAB
     Indication: RHEUMATOID ARTHRITIS
     Dosage: ON FRIDAYS
     Route: 058
     Dates: start: 20151204
  2. TILIDIN COMP [Concomitant]
     Active Substance: NALOXONE HYDROCHLORIDE\TILIDINE HYDROCHLORIDE
     Indication: PAIN
     Dosage: TILIDIN AL COMP
     Route: 065
  3. ROACTEMRA [Suspect]
     Active Substance: TOCILIZUMAB
     Indication: POLYMYALGIA RHEUMATICA
  4. NITROLINGUAL [Concomitant]
     Active Substance: NITROGLYCERIN
     Dosage: IN CASE OF EMERGENCY?AKUT
     Route: 060
  5. SYMBICORD [Concomitant]
     Active Substance: BUDESONIDE\FORMOTEROL
     Indication: CHRONIC OBSTRUCTIVE PULMONARY DISEASE
     Dosage: AS REQUIRED BY INFECTIONS
     Route: 055
  6. PANTOPRAZOL [Concomitant]
     Active Substance: PANTOPRAZOLE SODIUM
     Dosage: AL
     Route: 065
  7. HCT 1 A PHARMA [Concomitant]
     Indication: CARDIAC DISORDER
     Route: 065
  8. NOVAMINSULFON [Concomitant]
     Active Substance: METAMIZOLE
     Indication: PAIN
     Dosage: COMB
     Route: 065
  9. FOLIC ACID. [Concomitant]
     Active Substance: FOLIC ACID
     Dosage: ON SUNDAYS
     Route: 065
  10. LACTASE [Concomitant]
     Active Substance: LACTASE
     Route: 065
  11. PREDNISOLON [Concomitant]
     Active Substance: PREDNISOLONE
     Dosage: 5-20 MG
     Route: 065
  12. SYMBICORD [Concomitant]
     Active Substance: BUDESONIDE\FORMOTEROL
     Indication: LUNG INFECTION
     Dosage: AS REQUIRED BY INFECTIONS
     Route: 055
  13. TIZANIDIN [Concomitant]
     Indication: PAIN
     Dosage: AT NIGHT
     Route: 065
  14. MTX SUPPORT [Concomitant]
     Active Substance: CYANOCOBALAMIN\FOLIC ACID
     Indication: RHEUMATOID ARTHRITIS
     Dosage: ON SATURDAYS
     Route: 048
  15. HALOPERIDOL. [Concomitant]
     Active Substance: HALOPERIDOL
     Indication: NAUSEA
     Dosage: ON SATURDAYS
     Route: 065
  16. RESTEX [Concomitant]
     Active Substance: BENSERAZIDE\LEVODOPA
     Route: 065
  17. METOPROLOL. [Concomitant]
     Active Substance: METOPROLOL
     Indication: CARDIAC DISORDER
     Dosage: BETA
     Route: 065
  18. NOVAMINSULFON [Concomitant]
     Active Substance: METAMIZOLE
     Indication: PAIN
     Route: 065
  19. SIMVASTIN [Concomitant]
     Active Substance: SIMVASTATIN
     Indication: HYPERCHOLESTEROLAEMIA
     Route: 065
  20. VITAMIN D3 [Concomitant]
     Active Substance: CHOLECALCIFEROL
     Route: 065
  21. ASPIRIN. [Concomitant]
     Active Substance: ASPIRIN
     Indication: CARDIAC DISORDER
     Route: 065
  22. NOVAMINSULFON [Concomitant]
     Active Substance: METAMIZOLE
     Dosage: UNIT DOSE: 40 [DRP] COMB
     Route: 065
  23. CORTISONE [Concomitant]
     Active Substance: CORTISONE\HYDROCORTISONE
     Route: 065
  24. METHOTREXATE. [Concomitant]
     Active Substance: METHOTREXATE
     Indication: RHEUMATOID ARTHRITIS
     Dosage: ON SATURDAYS
     Route: 058

REACTIONS (15)
  - Osteoporosis [Not Recovered/Not Resolved]
  - Intestinal haemorrhage [Unknown]
  - Tunnel vision [Recovered/Resolved]
  - Influenza [Unknown]
  - Tooth disorder [Not Recovered/Not Resolved]
  - Vomiting [Unknown]
  - Arthralgia [Not Recovered/Not Resolved]
  - Peripheral swelling [Unknown]
  - Hepatic enzyme increased [Unknown]
  - Lactose intolerance [Not Recovered/Not Resolved]
  - Lacrimation increased [Unknown]
  - Constipation [Not Recovered/Not Resolved]
  - Fructose intolerance [Not Recovered/Not Resolved]
  - Arthropathy [Not Recovered/Not Resolved]
  - Vision blurred [Recovered/Resolved]

NARRATIVE: CASE EVENT DATE: 201708
